FAERS Safety Report 14319464 (Version 1)
Quarter: 2017Q4

REPORT INFORMATION
  Report Type: Spontaneous
  Country: US (occurrence: US)
  Receive Date: 20171221
  Receipt Date: 20171221
  Transmission Date: 20180321
  Serious: Yes (Other)
  Sender: FDA-Public Use
  Company Number: None

PATIENT
  Age: 33 Year
  Sex: Male

DRUGS (1)
  1. DUPIXENT [Suspect]
     Active Substance: DUPILUMAB
     Indication: ILL-DEFINED DISORDER
     Route: 058
     Dates: start: 20170630

REACTIONS (2)
  - Eyelid skin dryness [None]
  - Dacryostenosis acquired [None]

NARRATIVE: CASE EVENT DATE: 20171204
